FAERS Safety Report 21082419 (Version 4)
Quarter: 2023Q1

REPORT INFORMATION
  Report Type: Report from Study
  Country: US (occurrence: US)
  Receive Date: 20220714
  Receipt Date: 20230216
  Transmission Date: 20230418
  Serious: Yes (Hospitalization)
  Sender: FDA-Public Use
  Company Number: US-PFIZER INC-PV202200017825

PATIENT
  Age: 54 Year
  Sex: Male
  Weight: 96.054 kg

DRUGS (10)
  1. PF-07284892 [Suspect]
     Active Substance: PF-07284892
     Indication: Neoplasm malignant
     Dosage: 80 MG, 2X/WEEK
     Route: 048
     Dates: start: 20220517, end: 20220601
  2. PF-07284892 [Suspect]
     Active Substance: PF-07284892
     Dosage: 20 MG, 2X/WEEK
     Route: 048
     Dates: start: 20220614, end: 20220701
  3. BINIMETINIB [Suspect]
     Active Substance: BINIMETINIB
     Indication: Neoplasm malignant
     Dosage: 15 MG, 2X/DAY
     Route: 048
     Dates: start: 20220614, end: 20220701
  4. ACETAMINOPHEN [Concomitant]
     Active Substance: ACETAMINOPHEN
     Indication: Pain
     Dosage: UNK
     Dates: start: 202109
  5. ATROPA BELLADONNA\OPIUM [Concomitant]
     Active Substance: ATROPA BELLADONNA\OPIUM
     Indication: Bladder spasm
     Dosage: UNK
     Dates: start: 20210614
  6. CANNABIDIOL [Concomitant]
     Active Substance: CANNABIDIOL
     Indication: Insomnia
     Dosage: LIQUID
     Dates: start: 20220425
  7. VITAMIN B12 [Concomitant]
     Active Substance: CYANOCOBALAMIN
     Indication: Supplementation therapy
     Dosage: UNK
     Dates: start: 202201
  8. VITAMIN C [Concomitant]
     Active Substance: ASCORBIC ACID
     Indication: Supplementation therapy
     Dosage: UNK
     Dates: start: 202201
  9. ERGOCALCIFEROL [Concomitant]
     Active Substance: ERGOCALCIFEROL
     Indication: Supplementation therapy
     Dosage: UNK
     Dates: start: 202201
  10. VITAMIN E [Concomitant]
     Active Substance: .ALPHA.-TOCOPHEROL
     Indication: Supplementation therapy
     Dosage: UNK
     Dates: start: 202201

REACTIONS (1)
  - Blood bilirubin increased [Not Recovered/Not Resolved]

NARRATIVE: CASE EVENT DATE: 20220706
